FAERS Safety Report 22175200 (Version 1)
Quarter: 2023Q2

REPORT INFORMATION
  Report Type: Spontaneous
  Country: CA (occurrence: CA)
  Receive Date: 20230405
  Receipt Date: 20230405
  Transmission Date: 20230721
  Serious: Yes (Other)
  Sender: FDA-Public Use
  Company Number: CA-UCBSA-2023016581

PATIENT
  Age: 38 Year
  Sex: Female

DRUGS (3)
  1. KEPPRA [Suspect]
     Active Substance: LEVETIRACETAM
     Indication: Seizure
     Dosage: UNK
  2. ADALIMUMAB [Suspect]
     Active Substance: ADALIMUMAB
     Indication: Hidradenitis
     Dosage: 1 DOSAGE FORM (WEEK 0 160MG, WEEK 2 80MG THEN 40MG EVERY WEEKS STARTING WEEK 4),
     Route: 058
     Dates: start: 20221123
  3. DOXYCYCLINE [Concomitant]
     Active Substance: DOXYCYCLINE
     Indication: Product used for unknown indication
     Dosage: UNK

REACTIONS (13)
  - Seizure [Unknown]
  - Eye swelling [Recovered/Resolved]
  - Eczema [Not Recovered/Not Resolved]
  - Nasopharyngitis [Unknown]
  - Fatigue [Unknown]
  - Sinus headache [Not Recovered/Not Resolved]
  - Swelling of eyelid [Not Recovered/Not Resolved]
  - Eyelid skin dryness [Not Recovered/Not Resolved]
  - Eyelids pruritus [Not Recovered/Not Resolved]
  - Erythema [Not Recovered/Not Resolved]
  - Insomnia [Not Recovered/Not Resolved]
  - Dry skin [Recovered/Resolved]
  - Skin exfoliation [Recovered/Resolved]

NARRATIVE: CASE EVENT DATE: 20220101
